FAERS Safety Report 5805519-4 (Version None)
Quarter: 2008Q3

REPORT INFORMATION
  Report Type: 
  Country: None (occurrence: None)
  Receive Date: 20080710
  Receipt Date: 20080505
  Transmission Date: 20090109
  Serious: No
  Sender: FDA-Public Use
  Company Number: US-BAYER-200820029NA

PATIENT
  Age: 41 Year
  Sex: Female

DRUGS (1)
  1. MIRENA [Suspect]
     Indication: MENOMETRORRHAGIA
     Route: 015
     Dates: start: 20080228

REACTIONS (2)
  - ALOPECIA [None]
  - WEIGHT INCREASED [None]
